FAERS Safety Report 14074327 (Version 1)
Quarter: 2017Q4

REPORT INFORMATION
  Report Type: Report from Study
  Country: US (occurrence: US)
  Receive Date: 20171011
  Receipt Date: 20171011
  Transmission Date: 20180321
  Serious: No
  Sender: FDA-Public Use
  Company Number: US-PACK PHARMACEUTICALS, LLC-2017RIS00021

PATIENT
  Age: 15 Year
  Sex: Female
  Weight: 49.89 kg

DRUGS (1)
  1. CIPROFLOXACIN. [Suspect]
     Active Substance: CIPROFLOXACIN
     Indication: SALMONELLA BACTERAEMIA
     Dosage: 500 MG, 2X/DAY
     Route: 048
     Dates: start: 20170104, end: 201701

REACTIONS (9)
  - Acute psychosis [Recovering/Resolving]
  - Staring [Recovering/Resolving]
  - Agitation [Recovering/Resolving]
  - Panic attack [Recovered/Resolved]
  - Emotional distress [Recovering/Resolving]
  - Feeling abnormal [Recovering/Resolving]
  - Hyperventilation [Recovered/Resolved]
  - Asthenia [Recovering/Resolving]
  - Heart rate increased [Recovered/Resolved]

NARRATIVE: CASE EVENT DATE: 201701
